FAERS Safety Report 12894047 (Version 2)
Quarter: 2016Q4

REPORT INFORMATION
  Report Type: Spontaneous
  Country: AR (occurrence: AR)
  Receive Date: 20161028
  Receipt Date: 20161123
  Transmission Date: 20170207
  Serious: Yes (Death, Other)
  Sender: FDA-Public Use
  Company Number: AR-JNJFOC-20161024460

PATIENT
  Sex: Male

DRUGS (1)
  1. LEVOFLOXACIN. [Suspect]
     Active Substance: LEVOFLOXACIN
     Indication: FEBRILE NEUTROPENIA
     Route: 065

REACTIONS (4)
  - Infection [Fatal]
  - Multiple organ dysfunction syndrome [Unknown]
  - Shock [Unknown]
  - Bacteraemia [Unknown]
